FAERS Safety Report 8222806-3 (Version None)
Quarter: 2012Q1

REPORT INFORMATION
  Report Type: 
  Country: None (occurrence: None)
  Receive Date: 20120320
  Receipt Date: 20120309
  Transmission Date: 20120608
  Serious: Yes (Hospitalization)
  Sender: FDA-Public Use
  Company Number: US-JNJFOC-20111008831

PATIENT
  Sex: Female
  Weight: 28.1 kg

DRUGS (5)
  1. ANTIBIOTIC, UNSPECIFIED [Concomitant]
  2. INFLIXIMAB, RECOMBINANT [Suspect]
     Indication: INFLAMMATORY BOWEL DISEASE
     Route: 042
     Dates: start: 20110413
  3. MESALAMINE [Concomitant]
     Route: 048
  4. PREDNISONE TAB [Concomitant]
  5. PROTON PUMP INHIBITOR [Concomitant]

REACTIONS (2)
  - CLOSTRIDIAL INFECTION [None]
  - COLITIS ULCERATIVE [None]
